FAERS Safety Report 8376085-7 (Version None)
Quarter: 2012Q2

REPORT INFORMATION
  Report Type: 
  Country: None (occurrence: None)
  Receive Date: 20120522
  Receipt Date: 20120517
  Transmission Date: 20120825
  Serious: Yes (Hospitalization)
  Sender: FDA-Public Use
  Company Number: PHHY2012BR042591

PATIENT
  Sex: Male

DRUGS (6)
  1. ISOSORBIDE MONONITRATE [Concomitant]
  2. ONBREZ [Suspect]
     Indication: EMPHYSEMA
     Dosage: 150 UG, QD
     Dates: start: 20120414
  3. SIMVASTATIN [Concomitant]
  4. FLUTICASONE PROPIONATE/SALMETEROL [Concomitant]
     Indication: EMPHYSEMA
     Dates: start: 20120515
  5. VASTAREL [Concomitant]
  6. ATENOLOL [Concomitant]

REACTIONS (3)
  - CHEST PAIN [None]
  - DYSPNOEA [None]
  - INFLUENZA [None]
